FAERS Safety Report 13176426 (Version 1)
Quarter: 2017Q1

REPORT INFORMATION
  Report Type: Spontaneous
  Country: US (occurrence: US)
  Receive Date: 20170201
  Receipt Date: 20170201
  Transmission Date: 20170428
  Serious: Yes (Other)
  Sender: FDA-Public Use
  Company Number: US-PFIZER INC-A009357

PATIENT
  Age: 49 Year
  Sex: Female
  Weight: 57 kg

DRUGS (4)
  1. ZOLOFT [Interacting]
     Active Substance: SERTRALINE HYDROCHLORIDE
     Dosage: 50 MG, DAILY
     Route: 048
     Dates: start: 200002, end: 200003
  2. INDERAL [Concomitant]
     Active Substance: PROPRANOLOL HYDROCHLORIDE
     Indication: TACHYCARDIA
     Dates: start: 1999
  3. LORAZEPAM. [Concomitant]
     Active Substance: LORAZEPAM
     Indication: PANIC ATTACK
  4. DOXEPIN [Suspect]
     Active Substance: DOXEPIN
     Indication: SLEEP DISORDER
     Dosage: 5 MG, DAILY
     Route: 048
     Dates: start: 199708

REACTIONS (8)
  - Depression [Unknown]
  - Drug interaction [Unknown]
  - Bronchitis [Unknown]
  - Tachycardia [Unknown]
  - Anxiety [Not Recovered/Not Resolved]
  - Hypertonia [Not Recovered/Not Resolved]
  - Musculoskeletal stiffness [Unknown]
  - Panic attack [Unknown]

NARRATIVE: CASE EVENT DATE: 1999
